FAERS Safety Report 5034773-4 (Version None)
Quarter: 2006Q2

REPORT INFORMATION
  Report Type: 
  Country: None (occurrence: None)
  Receive Date: 20060509
  Receipt Date: 20060206
  Transmission Date: 20061013
  Serious: Yes (Hospitalization, Other)
  Sender: FDA-Public Use
  Company Number: US200602000389

PATIENT
  Age: 53 Year
  Sex: Female

DRUGS (7)
  1. PROZAC [Suspect]
     Indication: DEPRESSION
     Dosage: SEE IMAGE
     Dates: start: 19940101, end: 20050101
  2. PROZAC [Suspect]
     Indication: DEPRESSION
     Dosage: SEE IMAGE
     Dates: start: 19940101, end: 20050101
  3. CYMBALTA [Suspect]
     Indication: FIBROMYALGIA
     Dosage: SEE IMAGE
     Dates: start: 20050101
  4. PHENAPHEN (ACETYLSALICYLIC ACID, HYOSCYAMINE SULFATE, PHENACETIN, PHEN [Concomitant]
  5. TENORETIC (ATENOLOL, CHLORTALIDOME) [Concomitant]
  6. TRAZODONE HCL [Concomitant]
  7. REQUIP [Concomitant]

REACTIONS (22)
  - AORTIC CALCIFICATION [None]
  - CRYING [None]
  - DEPRESSED MOOD [None]
  - DEPRESSION [None]
  - DIVORCED [None]
  - EMOTIONAL DISORDER [None]
  - FATIGUE [None]
  - FIBROMYALGIA [None]
  - GASTRIC BYPASS [None]
  - HEPATIC CIRRHOSIS [None]
  - LOSS OF LIBIDO [None]
  - MEMORY IMPAIRMENT [None]
  - MUSCLE TIGHTNESS [None]
  - MYALGIA [None]
  - MYOFASCIAL PAIN SYNDROME [None]
  - PAIN [None]
  - PALPITATIONS [None]
  - SOMNOLENCE [None]
  - STRESS [None]
  - VICTIM OF CRIME [None]
  - WEIGHT DECREASED [None]
  - WEIGHT INCREASED [None]
